FAERS Safety Report 6566487-3 (Version None)
Quarter: 2010Q1

REPORT INFORMATION
  Report Type: 
  Country: None (occurrence: None)
  Receive Date: 20100202
  Receipt Date: 20100113
  Transmission Date: 20100710
  Serious: Yes (Hospitalization)
  Sender: FDA-Public Use
  Company Number: US-SANOFI-AVENTIS-200916756EU

PATIENT
  Age: 31 Year
  Sex: Female
  Weight: 63.04 kg

DRUGS (8)
  1. FERRLECIT [Suspect]
     Dosage: DOSE: 125MG WITH 100 ML NS, OVER 1/2 HR.
     Dates: start: 20091016, end: 20091016
  2. FERRLECIT [Suspect]
     Indication: MALABSORPTION
     Dosage: DOSE: 125MG WITH 100 ML NS, OVER 1/2 HR.
     Dates: start: 20091016, end: 20091016
  3. FERRLECIT [Suspect]
     Dosage: DOSE: 62.5 MG/5 ML
     Dates: start: 20091002, end: 20091002
  4. FERRLECIT [Suspect]
     Dosage: DOSE: 62.5 MG/5 ML
     Dates: start: 20091002, end: 20091002
  5. KLONOPIN [Concomitant]
     Indication: DRUG USE FOR UNKNOWN INDICATION
     Dates: start: 20090701
  6. ZYPREXA [Concomitant]
     Indication: DRUG USE FOR UNKNOWN INDICATION
     Dates: start: 20090701
  7. TOPAMAX [Concomitant]
     Indication: DRUG USE FOR UNKNOWN INDICATION
     Dates: start: 20090701
  8. VICODIN [Concomitant]
     Indication: DRUG USE FOR UNKNOWN INDICATION
     Dosage: 5/500 MG
     Route: 065

REACTIONS (8)
  - ATOPY [None]
  - DISCOMFORT [None]
  - HEADACHE [None]
  - HYPONATRAEMIA [None]
  - MENINGITIS [None]
  - MENINGITIS ENTEROVIRAL [None]
  - MOUTH ULCERATION [None]
  - STOMATITIS [None]
